FAERS Safety Report 8815856 (Version 2)
Quarter: 2013Q1

REPORT INFORMATION
  Report Type: Other
  Country: US (occurrence: US)
  Receive Date: 20120928
  Receipt Date: 20130304
  Transmission Date: 20140127
  Serious: Yes (Hospitalization, Disabling, Other)
  Sender: FDA-Public Use
  Company Number: US-NAPPMUNDI-GBR-2012-0011473

PATIENT
  Age: 65 Year
  Sex: Male

DRUGS (2)
  1. HYDROMORPHONE HCL INJECTABLE [Suspect]
     Indication: PAIN
     Dosage: 2 MG/20 MG/ML CONCENTRATION DAILY
     Route: 037
     Dates: start: 200807
  2. BUPIVACAINE [Concomitant]
     Dosage: 10 MG/ML, UNK
     Dates: start: 200807

REACTIONS (1)
  - Injection site granuloma [Recovered/Resolved]
